FAERS Safety Report 11225448 (Version 1)
Quarter: 2015Q2

REPORT INFORMATION
  Report Type: Spontaneous
  Country: FR (occurrence: FR)
  Receive Date: 20150629
  Receipt Date: 20150629
  Transmission Date: 20150821
  Serious: Yes (Hospitalization)
  Sender: FDA-Public Use
  Company Number: FR-JNJFOC-20150617771

PATIENT
  Age: 72 Year
  Sex: Male

DRUGS (5)
  1. COUMADINE [Concomitant]
     Active Substance: WARFARIN SODIUM
     Route: 048
     Dates: start: 201407
  2. BISOPROLOL FUMARATE. [Concomitant]
     Active Substance: BISOPROLOL FUMARATE
     Route: 048
     Dates: start: 201407
  3. TAHOR [Concomitant]
     Active Substance: ATORVASTATIN CALCIUM
     Route: 048
     Dates: start: 201407
  4. INSPRA [Concomitant]
     Active Substance: EPLERENONE
     Route: 048
     Dates: start: 201407
  5. REMICADE [Suspect]
     Active Substance: INFLIXIMAB
     Indication: PROCTITIS HAEMORRHAGIC
     Route: 042
     Dates: start: 200905, end: 201504

REACTIONS (2)
  - Product use issue [Unknown]
  - Pulmonary tuberculosis [Recovering/Resolving]

NARRATIVE: CASE EVENT DATE: 20150404
